FAERS Safety Report 16417310 (Version 2)
Quarter: 2019Q2

REPORT INFORMATION
  Report Type: Spontaneous
  Country: US (occurrence: US)
  Receive Date: 20190611
  Receipt Date: 20190621
  Transmission Date: 20190711
  Serious: Yes (Other)
  Sender: FDA-Public Use
  Company Number: US-ASTRAZENECA-2019SE11748

PATIENT
  Age: 255 Month

DRUGS (4)
  1. NEXIUM [Suspect]
     Active Substance: ESOMEPRAZOLE MAGNESIUM
     Route: 048
     Dates: start: 199701, end: 201701
  2. NEXIUM [Suspect]
     Active Substance: ESOMEPRAZOLE MAGNESIUM
     Route: 048
     Dates: start: 20010301, end: 20170101
  3. PRILOSEC [Suspect]
     Active Substance: OMEPRAZOLE MAGNESIUM
     Route: 048
     Dates: start: 19970101, end: 20181101
  4. PRILOSEC [Suspect]
     Active Substance: OMEPRAZOLE MAGNESIUM
     Route: 048
     Dates: start: 199701, end: 201701

REACTIONS (7)
  - Renal failure [Unknown]
  - Dyspepsia [Unknown]
  - Chronic kidney disease [Unknown]
  - Tubulointerstitial nephritis [Unknown]
  - Acute kidney injury [Unknown]
  - End stage renal disease [Unknown]
  - Renal injury [Unknown]

NARRATIVE: CASE EVENT DATE: 200006
